FAERS Safety Report 7597970-X (Version None)
Quarter: 2011Q3

REPORT INFORMATION
  Report Type: 
  Country: None (occurrence: None)
  Receive Date: 20110708
  Receipt Date: 20110630
  Transmission Date: 20111222
  Serious: Yes (Other)
  Sender: FDA-Public Use
  Company Number: PHHY2011RU57925

PATIENT
  Age: 62 Year
  Sex: Male

DRUGS (3)
  1. CYCLOSPORINE [Suspect]
     Route: 048
  2. OMEPRAZOLE [Concomitant]
  3. DICLOFENAC [Concomitant]

REACTIONS (5)
  - SLEEP DISORDER [None]
  - PAIN [None]
  - MUSCULOSKELETAL STIFFNESS [None]
  - HYPERTHERMIA [None]
  - DRUG INEFFECTIVE [None]
